FAERS Safety Report 24409652 (Version 1)
Quarter: 2024Q4

REPORT INFORMATION
  Report Type: Report from Study
  Country: CN (occurrence: CN)
  Receive Date: 20241008
  Receipt Date: 20241008
  Transmission Date: 20250115
  Serious: Yes (Hospitalization)
  Sender: ROCHE
  Company Number: CN-ROCHE-10000094232

PATIENT
  Age: 68 Year
  Sex: Female

DRUGS (1)
  1. GLOFITAMAB [Suspect]
     Active Substance: GLOFITAMAB
     Indication: Diffuse large B-cell lymphoma
     Route: 042
     Dates: start: 20240703

REACTIONS (4)
  - Pneumonia [Unknown]
  - Cranial nerve disorder [Unknown]
  - Memory impairment [Unknown]
  - Dysstasia [Unknown]
